FAERS Safety Report 7040653-5 (Version None)
Quarter: 2010Q4

REPORT INFORMATION
  Report Type: 
  Country: None (occurrence: None)
  Receive Date: 20101013
  Receipt Date: 20101005
  Transmission Date: 20110411
  Serious: Yes (Other)
  Sender: FDA-Public Use
  Company Number: US-AMGEN-KDL443296

PATIENT
  Sex: Male

DRUGS (1)
  1. ENBREL [Suspect]
     Indication: ANKYLOSING SPONDYLITIS
     Route: 058
     Dates: start: 20100813

REACTIONS (8)
  - ARTHRITIS [None]
  - CONVULSION [None]
  - DYSPNOEA [None]
  - FATIGUE [None]
  - FEAR [None]
  - HEADACHE [None]
  - MALAISE [None]
  - PALLOR [None]
